FAERS Safety Report 8465835-7 (Version None)
Quarter: 2012Q2

REPORT INFORMATION
  Report Type: 
  Country: None (occurrence: None)
  Receive Date: 20120626
  Receipt Date: 20120618
  Transmission Date: 20120825
  Serious: Yes (Hospitalization)
  Sender: FDA-Public Use
  Company Number: BR-ABBOTT-12P-020-0946145-00

PATIENT
  Sex: Female
  Weight: 77 kg

DRUGS (3)
  1. HUMIRA [Suspect]
     Route: 058
     Dates: start: 20120223, end: 20120223
  2. HUMIRA [Suspect]
     Route: 058
     Dates: start: 20120309
  3. HUMIRA [Suspect]
     Indication: CROHN'S DISEASE
     Dates: start: 20120208, end: 20120208

REACTIONS (1)
  - ANAL FISTULA [None]
